FAERS Safety Report 7021468-0 (Version None)
Quarter: 2010Q3

REPORT INFORMATION
  Report Type: 
  Country: None (occurrence: None)
  Receive Date: 20100929
  Receipt Date: 20100924
  Transmission Date: 20110219
  Serious: Yes (Hospitalization)
  Sender: FDA-Public Use
  Company Number: FR-ELI_LILLY_AND_COMPANY-FR201009007157

PATIENT
  Age: 50 Year
  Sex: Female

DRUGS (3)
  1. BYETTA [Suspect]
     Dosage: 10 UG, UNK
     Route: 058
     Dates: start: 20100201
  2. BIGUANIDES [Concomitant]
  3. ENZYME INHIBITORS [Concomitant]

REACTIONS (5)
  - ABDOMINAL PAIN [None]
  - NAUSEA [None]
  - RENAL FAILURE [None]
  - VOMITING [None]
  - WEIGHT DECREASED [None]
